FAERS Safety Report 9932382 (Version 1)
Quarter: 2014Q1

REPORT INFORMATION
  Report Type: Spontaneous
  Country: US (occurrence: US)
  Receive Date: 20140228
  Receipt Date: 20140228
  Transmission Date: 20141002
  Serious: No
  Sender: FDA-Public Use
  Company Number: US-GLAXOSMITHKLINE-A1009796A

PATIENT
  Age: 54 Year
  Sex: Female
  Weight: 57.7 kg

DRUGS (1)
  1. LAMICTAL [Suspect]
     Indication: PRODUCT USED FOR UNKNOWN INDICATION
     Dosage: 150MG UNKNOWN
     Route: 048
     Dates: start: 20121115, end: 20130117

REACTIONS (7)
  - Drug intolerance [Recovered/Resolved]
  - Feeling of despair [Recovered/Resolved]
  - Ill-defined disorder [Recovered/Resolved]
  - Muscular weakness [Recovered/Resolved]
  - Balance disorder [Recovered/Resolved]
  - Activities of daily living impaired [Recovered/Resolved]
  - Bradyphrenia [Recovered/Resolved]
